FAERS Safety Report 6337230-8 (Version None)
Quarter: 2009Q3

REPORT INFORMATION
  Report Type: 
  Country: None (occurrence: None)
  Receive Date: 20090902
  Receipt Date: 20090827
  Transmission Date: 20100115
  Serious: Yes (Hospitalization)
  Sender: FDA-Public Use
  Company Number: US-BIOGENIDEC-2008BI022959

PATIENT
  Age: 45 Year
  Sex: Female

DRUGS (2)
  1. TYSABRI [Suspect]
     Indication: MULTIPLE SCLEROSIS
     Route: 042
     Dates: start: 20080617, end: 20080716
  2. TYSABRI [Suspect]
     Route: 042
     Dates: start: 20090827

REACTIONS (2)
  - HYSTERECTOMY [None]
  - OVARIAN CANCER [None]
